FAERS Safety Report 21982799 (Version 9)
Quarter: 2023Q4

REPORT INFORMATION
  Report Type: Report from Study
  Country: US (occurrence: US)
  Receive Date: 20230213
  Receipt Date: 20231121
  Transmission Date: 20240110
  Serious: Yes (Other)
  Sender: FDA-Public Use
  Company Number: US-002147023-NVSC2023US029802

PATIENT
  Age: 51 Year
  Sex: Female

DRUGS (1)
  1. KESIMPTA [Suspect]
     Active Substance: OFATUMUMAB
     Indication: Relapsing multiple sclerosis
     Dosage: 20 MG, QMO
     Route: 058
     Dates: start: 20230111, end: 20230810

REACTIONS (27)
  - Cellulitis [Unknown]
  - Thrombosis [Unknown]
  - Multiple sclerosis [Unknown]
  - Tachyphrenia [Unknown]
  - Fatigue [Unknown]
  - Insomnia [Unknown]
  - Emotional distress [Unknown]
  - Thinking abnormal [Unknown]
  - Disturbance in attention [Unknown]
  - Fall [Unknown]
  - Muscular weakness [Unknown]
  - Intervertebral disc degeneration [Unknown]
  - Arthritis [Not Recovered/Not Resolved]
  - Vulvovaginal pain [Unknown]
  - Abdominal discomfort [Unknown]
  - Pain [Recovering/Resolving]
  - Hypokinesia [Unknown]
  - Mobility decreased [Not Recovered/Not Resolved]
  - Temperature intolerance [Unknown]
  - Hyperaesthesia [Unknown]
  - Breast calcifications [Unknown]
  - Dysphagia [Unknown]
  - Osteopenia [Unknown]
  - Headache [Unknown]
  - Blood pressure decreased [Unknown]
  - Heart rate decreased [Unknown]
  - Dehydration [Unknown]

NARRATIVE: CASE EVENT DATE: 20230206
